FAERS Safety Report 15127131 (Version 1)
Quarter: 2018Q3

REPORT INFORMATION
  Report Type: Spontaneous
  Country: DK (occurrence: DK)
  Receive Date: 20180710
  Receipt Date: 20180710
  Transmission Date: 20181010
  Serious: Yes (Other)
  Sender: FDA-Public Use
  Company Number: DK-TEVA-2018-DK-923097

PATIENT
  Age: 69 Year
  Sex: Male
  Weight: 78 kg

DRUGS (5)
  1. FINASTERIDE ^TEVA^ [Suspect]
     Active Substance: FINASTERIDE
     Indication: PROSTATOMEGALY
     Dosage: 5 MILLIGRAM DAILY; STRENGTH: 5 MG.
     Route: 048
     Dates: start: 20180222, end: 20180314
  2. METOPROLOL. [Concomitant]
     Active Substance: METOPROLOL
     Indication: ARRHYTHMIA SUPRAVENTRICULAR
     Dosage: 100 MILLIGRAM DAILY; STRENGTH: 100 MG.
     Route: 048
     Dates: start: 2000
  3. METFORMIN [Concomitant]
     Active Substance: METFORMIN HYDROCHLORIDE
     Indication: TYPE 2 DIABETES MELLITUS
     Dosage: 3000 MILLIGRAM DAILY; STRENGTH: 500 MG.
     Route: 048
     Dates: start: 2008
  4. DIGOXIN. [Concomitant]
     Active Substance: DIGOXIN
     Indication: ARRHYTHMIA SUPRAVENTRICULAR
     Dosage: 125 MICROGRAM DAILY; STRENGTH: 62,5 MIKROGRAM.
     Route: 048
     Dates: start: 2007
  5. WARFARIN [Concomitant]
     Active Substance: WARFARIN
     Indication: THROMBOSIS PROPHYLAXIS
     Dosage: STRENGTH: 2,5 MG. DOSE: UPON WRITTEN INSTRUCTIONS..
     Route: 048
     Dates: start: 20151016

REACTIONS (2)
  - Blood pressure increased [Recovered/Resolved]
  - Conjunctival haemorrhage [Recovered/Resolved]

NARRATIVE: CASE EVENT DATE: 20180314
